FAERS Safety Report 11298330 (Version 1)
Quarter: 2015Q3

REPORT INFORMATION
  Report Type: Spontaneous
  Country: US (occurrence: US)
  Receive Date: 20150722
  Receipt Date: 20150722
  Transmission Date: 20151125
  Serious: No
  Sender: FDA-Public Use
  Company Number: US-ELI_LILLY_AND_COMPANY-US201106006479

PATIENT
  Sex: Female

DRUGS (1)
  1. EVISTA [Suspect]
     Active Substance: RALOXIFENE HYDROCHLORIDE
     Indication: OSTEOPOROSIS PROPHYLAXIS
     Dosage: 60 MG, UNK

REACTIONS (8)
  - Peripheral swelling [Unknown]
  - Contusion [Unknown]
  - Dyspnoea [Unknown]
  - Memory impairment [Unknown]
  - Transient ischaemic attack [Unknown]
  - Vein disorder [Unknown]
  - Cardiac disorder [Unknown]
  - Hypoacusis [Unknown]
